FAERS Safety Report 7000551-X (Version None)
Quarter: 2010Q3

REPORT INFORMATION
  Report Type: 
  Country: None (occurrence: None)
  Receive Date: 20100920
  Receipt Date: 20100513
  Transmission Date: 20110219
  Serious: Yes (Hospitalization)
  Sender: FDA-Public Use
  Company Number: US-ASTRAZENECA-2010SE22060

PATIENT
  Age: 43 Year
  Sex: Male

DRUGS (9)
  1. SEROQUEL [Suspect]
     Indication: SCHIZOAFFECTIVE DISORDER
     Route: 048
     Dates: end: 20091101
  2. SEROQUEL [Suspect]
     Indication: BIPOLAR DISORDER
     Route: 048
     Dates: end: 20091101
  3. SEROQUEL [Suspect]
     Route: 048
     Dates: start: 20091101
  4. SEROQUEL [Suspect]
     Route: 048
     Dates: start: 20091101
  5. VALPROIC ACID [Concomitant]
  6. VALDOXIN [Concomitant]
  7. ZOPICLONE [Concomitant]
  8. QUILONUM [Concomitant]
  9. VALORON [Concomitant]

REACTIONS (1)
  - GRAND MAL CONVULSION [None]
